FAERS Safety Report 14874244 (Version 1)
Quarter: 2018Q2

REPORT INFORMATION
  Report Type: Spontaneous
  Country: US (occurrence: US)
  Receive Date: 20180510
  Receipt Date: 20180510
  Transmission Date: 20180711
  Serious: No
  Sender: FDA-Public Use
  Company Number: US-GLAXOSMITHKLINE-US2018079481

PATIENT
  Age: 83 Year
  Sex: Male

DRUGS (6)
  1. ADVAIR DISKUS [Suspect]
     Active Substance: FLUTICASONE PROPIONATE\SALMETEROL XINAFOATE
     Indication: INFLUENZA
     Dosage: 1 PUFF(S), BID
     Route: 055
     Dates: start: 20180430, end: 20180503
  2. BENZONATATE. [Concomitant]
     Active Substance: BENZONATATE
  3. HYDROCODONE [Concomitant]
     Active Substance: HYDROCODONE
  4. VENTOLIN [Concomitant]
     Active Substance: ALBUTEROL SULFATE
  5. ADVAIR DISKUS [Suspect]
     Active Substance: FLUTICASONE PROPIONATE\SALMETEROL XINAFOATE
     Indication: WHEEZING
  6. DOXYCYCLINE. [Concomitant]
     Active Substance: DOXYCYCLINE

REACTIONS (6)
  - Oral mucosal blistering [Not Recovered/Not Resolved]
  - Lip blister [Not Recovered/Not Resolved]
  - Blister [Not Recovered/Not Resolved]
  - Drug dose omission [Recovered/Resolved]
  - Product use in unapproved indication [Unknown]
  - Wrong technique in device usage process [Unknown]

NARRATIVE: CASE EVENT DATE: 20180430
